FAERS Safety Report 23670350 (Version 3)
Quarter: 2024Q2

REPORT INFORMATION
  Report Type: Spontaneous
  Country: BR (occurrence: BR)
  Receive Date: 20240325
  Receipt Date: 20240606
  Transmission Date: 20240716
  Serious: Yes (Other)
  Sender: FDA-Public Use
  Company Number: BR-BoehringerIngelheim-2024-BI-016758

PATIENT
  Age: 73 Year
  Sex: Female
  Weight: 85 kg

DRUGS (1)
  1. TIOTROPIUM BROMIDE [Suspect]
     Active Substance: TIOTROPIUM BROMIDE
     Indication: Asthma
     Dosage: 2 SPRAYS A DAY
     Route: 055
     Dates: start: 2013

REACTIONS (3)
  - Dementia [Not Recovered/Not Resolved]
  - Chronic obstructive pulmonary disease [Unknown]
  - Asthma [Unknown]
